FAERS Safety Report 10495822 (Version 1)
Quarter: 2014Q3

REPORT INFORMATION
  Report Type: Spontaneous
  Country: US (occurrence: None)
  Receive Date: 20140815
  Receipt Date: 20140815
  Transmission Date: 20150326
  Serious: Yes (Hospitalization, Other)
  Sender: FDA-Public Use
  Company Number: ADR-2013-01924

PATIENT
  Age: 48 Year
  Sex: Male

DRUGS (3)
  1. MORPHINE [Suspect]
     Active Substance: MORPHINE
     Dosage: .6012/DAY
  2. BUPIVACAINE [Suspect]
     Active Substance: BUPIVACAINE
  3. LIORESAL [Suspect]
     Active Substance: BACLOFEN
     Indication: MUSCLE SPASTICITY

REACTIONS (3)
  - Convulsion [None]
  - Blood sodium decreased [None]
  - Mental status changes [None]

NARRATIVE: CASE EVENT DATE: 20131009
